FAERS Safety Report 8775966 (Version 3)
Quarter: 2018Q1

REPORT INFORMATION
  Report Type: Spontaneous
  Country: US (occurrence: US)
  Receive Date: 20120910
  Receipt Date: 20180105
  Transmission Date: 20180509
  Serious: Yes (Hospitalization, Other)
  Sender: FDA-Public Use
  Company Number: US-009507513-1206USA05066

PATIENT
  Sex: Female

DRUGS (5)
  1. BONIVA [Suspect]
     Active Substance: IBANDRONATE SODIUM
     Indication: OSTEOPENIA
     Dosage: UNK
     Route: 048
     Dates: start: 1998, end: 2011
  2. IBANDRONATE SODIUM. [Suspect]
     Active Substance: IBANDRONATE SODIUM
     Indication: OSTEOPENIA
     Dosage: UNK
     Route: 048
     Dates: start: 1998, end: 2011
  3. FOSAMAX [Suspect]
     Active Substance: ALENDRONATE SODIUM
     Indication: OSTEOPENIA
     Dosage: UNK
     Route: 048
     Dates: start: 1998, end: 2011
  4. ALENDRONATE SODIUM. [Suspect]
     Active Substance: ALENDRONATE SODIUM
     Indication: OSTEOPOROSIS
     Dosage: 70 MG, UNK
     Dates: start: 20080716, end: 20101007
  5. ALENDRONATE SODIUM. [Suspect]
     Active Substance: ALENDRONATE SODIUM
     Indication: OSTEOPENIA
     Dosage: UNK
     Route: 048
     Dates: start: 1998, end: 2011

REACTIONS (22)
  - Femur fracture [Recovered/Resolved]
  - Bone disorder [Unknown]
  - Atrial fibrillation [Recovered/Resolved]
  - Retinal tear [Unknown]
  - Anaemia [Recovered/Resolved]
  - Hypertension [Unknown]
  - Osteoarthritis [Unknown]
  - Meniscus removal [Unknown]
  - Femur fracture [Recovering/Resolving]
  - Pathological fracture [Unknown]
  - Basal cell carcinoma [Unknown]
  - Foot fracture [Unknown]
  - Lesion excision [Unknown]
  - Cataract operation [Unknown]
  - Anxiety [Not Recovered/Not Resolved]
  - Spinal column stenosis [Unknown]
  - Hypokalaemia [Unknown]
  - Fall [Unknown]
  - Groin pain [Unknown]
  - Lens capsulotomy [Unknown]
  - Tenoplasty [Unknown]
  - Vitrectomy [Unknown]

NARRATIVE: CASE EVENT DATE: 200709
